FAERS Safety Report 18213469 (Version 3)
Quarter: 2020Q4

REPORT INFORMATION
  Report Type: Spontaneous
  Country: US (occurrence: US)
  Receive Date: 20200831
  Receipt Date: 20201112
  Transmission Date: 20210113
  Serious: No
  Sender: FDA-Public Use
  Company Number: US-PFIZER INC-2020333995

PATIENT
  Age: 64 Year
  Sex: Female

DRUGS (1)
  1. IBRANCE [Suspect]
     Active Substance: PALBOCICLIB
     Indication: BREAST CANCER FEMALE
     Dosage: 100 MG, CYCLIC (100 MG ONCE DAILY X 21 DAYS EVERY 28 DAYS)
     Dates: start: 20181219

REACTIONS (5)
  - Fatigue [Unknown]
  - Exostosis [Not Recovered/Not Resolved]
  - Decreased appetite [Unknown]
  - Alopecia [Unknown]
  - Noninfective gingivitis [Unknown]

NARRATIVE: CASE EVENT DATE: 20201025
